FAERS Safety Report 9011803 (Version 1)
Quarter: 2012Q4

REPORT INFORMATION
  Report Type: Spontaneous
  Country: US (occurrence: None)
  Receive Date: 20121228
  Receipt Date: 20121228
  Transmission Date: 20130627
  Serious: Yes (Death)
  Sender: FDA-Public Use
  Company Number: 2012-664

PATIENT
  Age: 29 Year
  Sex: Male

DRUGS (13)
  1. FAZACLO [Suspect]
     Indication: SCHIZOAFFECTIVE DISORDER
     Route: 048
     Dates: start: 20061111, end: 20121123
  2. COLACE (DOCUSATE SODIUM) [Concomitant]
  3. LANTUS (INSULIN GLARGINE) [Concomitant]
  4. HALOPERIDOL (HELOPERIDOL DECANOATE) [Concomitant]
  5. DIOVAN (VALSARTAN) [Concomitant]
  6. SIMVASTATIN (SIMVASTATIN) [Concomitant]
  7. METFORMIN HCL (METFORMIN HYDROCHLORIDE) [Concomitant]
  8. GLIMEPRIDE (GLIMEPRIDE) [Concomitant]
  9. NIASPAN (NICOTINIC (ACID) [Concomitant]
  10. BENZTROPINE MESILATE (BENZATROPINE MESILATE) [Concomitant]
  11. VITAMIN D (ERGOCALCIFEROL) [Concomitant]
  12. RANITIDINE (RANITIDINE HYDROCHLORIDE) [Concomitant]
  13. ZYPREXIA (OLANZAPINE) [Concomitant]

REACTIONS (1)
  - Cardiac arrest [None]
